FAERS Safety Report 5363787-X (Version None)
Quarter: 2007Q2

REPORT INFORMATION
  Report Type: 
  Country: None (occurrence: None)
  Receive Date: 20070620
  Receipt Date: 20070613
  Transmission Date: 20071010
  Serious: Yes (Other)
  Sender: FDA-Public Use
  Company Number: JP-MERCK-0706USA02867

PATIENT
  Age: 57 Year
  Sex: Male

DRUGS (2)
  1. HYZAAR [Suspect]
     Indication: HYPERTENSION
     Route: 048
     Dates: start: 20070201
  2. [THERAPY UNSPECIFIED] [Concomitant]
     Route: 048

REACTIONS (2)
  - RETINAL ARTERY OCCLUSION [None]
  - VISUAL FIELD DEFECT [None]
